FAERS Safety Report 4288623-4 (Version None)
Quarter: 2004Q1

REPORT INFORMATION
  Report Type: 
  Country: None (occurrence: None)
  Receive Date: 20040209
  Receipt Date: 20040205
  Transmission Date: 20041129
  Serious: Yes (Death, Life-Threatening, Hospitalization)
  Sender: FDA-Public Use
  Company Number: ZW-GLAXOSMITHKLINE-B0322244A

PATIENT
  Age: 49 Year
  Sex: Male

DRUGS (3)
  1. COMBIVIR [Suspect]
     Indication: HIV INFECTION
     Route: 048
  2. TENOFOVIR [Suspect]
     Indication: HIV INFECTION
     Route: 048
  3. COTRIMOXAZOLE [Suspect]
     Route: 048

REACTIONS (6)
  - ANAEMIA [None]
  - MALAISE [None]
  - NEUTROPENIA [None]
  - PANCYTOPENIA [None]
  - SEPSIS [None]
  - THROMBOCYTOPENIA [None]
